FAERS Safety Report 5391487-9 (Version None)
Quarter: 2007Q3

REPORT INFORMATION
  Report Type: 
  Country: None (occurrence: None)
  Receive Date: 20070719
  Receipt Date: 20070601
  Transmission Date: 20080115
  Serious: Yes (Disabling)
  Sender: FDA-Public Use
  Company Number: BR-ROCHE-507044

PATIENT
  Age: 41 Year
  Sex: Male
  Weight: 63 kg

DRUGS (4)
  1. PEGASYS [Suspect]
     Indication: HEPATITIS C
     Dosage: FORM: VIAL
     Route: 058
  2. RIBAVIRIN [Concomitant]
     Indication: HEPATITIS C
     Route: 065
  3. METFORMIN HCL [Concomitant]
     Route: 065
  4. EPOGEN [Concomitant]
     Dates: end: 20070101

REACTIONS (4)
  - FURUNCLE [None]
  - HAEMOGLOBIN DECREASED [None]
  - PYREXIA [None]
  - RETINAL DETACHMENT [None]
